FAERS Safety Report 13261698 (Version 1)
Quarter: 2017Q1

REPORT INFORMATION
  Report Type: Spontaneous
  Country: US (occurrence: US)
  Receive Date: 20170222
  Receipt Date: 20170222
  Transmission Date: 20170428
  Serious: No
  Sender: FDA-Public Use
  Company Number: GXBR2017US000589

PATIENT
  Sex: Female
  Weight: 129.25 kg

DRUGS (1)
  1. AMOXICILLIN AND CLAVULANATE POTASSIUM TABLETS USP [Suspect]
     Active Substance: AMOXICILLIN\CLAVULANATE POTASSIUM
     Indication: PHARYNGITIS STREPTOCOCCAL
     Dosage: 125 MG, Q12H
     Route: 048
     Dates: start: 20170123

REACTIONS (1)
  - Rash erythematous [Recovering/Resolving]
